FAERS Safety Report 4772928-4 (Version None)
Quarter: 2005Q3

REPORT INFORMATION
  Report Type: 
  Country: None (occurrence: None)
  Receive Date: 20050916
  Receipt Date: 20050902
  Transmission Date: 20060218
  Serious: Yes (Death)
  Sender: FDA-Public Use
  Company Number: 2005-01884

PATIENT
  Age: 69 Year
  Sex: Male
  Weight: 55 kg

DRUGS (10)
  1. VELCADE [Suspect]
     Indication: MULTIPLE MYELOMA
     Dosage: 130 MG/M2, 2/WEEK, INTRAVENOUS
     Route: 042
     Dates: start: 20050809, end: 20050819
  2. METOPROLOL SUCCINATE [Concomitant]
  3. NORVASC [Concomitant]
  4. PREDNISONE [Concomitant]
  5. MARCUMAR [Concomitant]
  6. COTRIM FORTE (SULFAMETHOXAZOLE, TRIMETHOPRIM) [Concomitant]
  7. VALTREX [Concomitant]
  8. EPREX [Concomitant]
  9. DIFLUCAN [Concomitant]
  10. DEXAMETHASONE [Concomitant]

REACTIONS (1)
  - DIALYSIS [None]
